FAERS Safety Report 20981173 (Version 2)
Quarter: 2022Q3

REPORT INFORMATION
  Report Type: Report from Study
  Country: MX (occurrence: MX)
  Receive Date: 20220620
  Receipt Date: 20220624
  Transmission Date: 20221027
  Serious: Yes (Life-Threatening, Other)
  Sender: FDA-Public Use
  Company Number: MX-NOVARTISPH-NVSC2022MX139422

PATIENT
  Sex: Female
  Weight: 69 kg

DRUGS (2)
  1. DIOVAN [Suspect]
     Active Substance: VALSARTAN
     Indication: Hypertension
     Dosage: 1 DOSAGE FORM (160 MG), Q12H (IN MORNING AND AT NIGHT)
     Route: 048
  2. DIOVAN [Suspect]
     Active Substance: VALSARTAN
     Dosage: 0.5 DOSAGE FORM (160 MG) Q12H , BID (IN MORNING AND AT NIGHT)
     Route: 048

REACTIONS (13)
  - Renal disorder [Recovered/Resolved with Sequelae]
  - Kidney infection [Recovered/Resolved with Sequelae]
  - Device related infection [Unknown]
  - Cartilage injury [Unknown]
  - Weight increased [Unknown]
  - Oropharyngeal discomfort [Unknown]
  - Headache [Not Recovered/Not Resolved]
  - Fall [Recovered/Resolved with Sequelae]
  - Meniscus injury [Recovered/Resolved with Sequelae]
  - Gait disturbance [Recovered/Resolved with Sequelae]
  - Lung disorder [Not Recovered/Not Resolved]
  - Wrong technique in product usage process [Unknown]
  - Off label use [Unknown]
